FAERS Safety Report 5326040-6 (Version None)
Quarter: 2007Q2

REPORT INFORMATION
  Report Type: 
  Country: None (occurrence: None)
  Receive Date: 20070516
  Receipt Date: 20070504
  Transmission Date: 20071010
  Serious: Yes (Death, Hospitalization)
  Sender: FDA-Public Use
  Company Number: HQWYE882913JUL06

PATIENT
  Sex: Male

DRUGS (9)
  1. PANTOPRAZOLE SODIUM [Suspect]
     Indication: HEPATIC CIRRHOSIS
     Route: 048
     Dates: start: 20060401, end: 20060520
  2. UNSPECIFIED ANTIDIABETIC AGENT [Concomitant]
     Indication: DIABETES MELLITUS NON-INSULIN-DEPENDENT
     Dosage: UNKNOWN
     Route: 048
     Dates: end: 20060401
  3. PREDNISOLONE [Suspect]
     Indication: AUTOIMMUNE HEPATITIS
  4. SPIRESIS [Concomitant]
     Indication: ESSENTIAL HYPERTENSION
     Route: 048
     Dates: start: 20060401, end: 20060522
  5. CALCICHEW [Concomitant]
     Route: 048
     Dates: start: 20060401, end: 20060522
  6. LACTULOSE [Concomitant]
     Indication: HEPATIC CIRRHOSIS
     Dosage: UNKNOWN ML
     Route: 048
     Dates: start: 20060401, end: 20060522
  7. INSULIN [Concomitant]
     Indication: DIABETES MELLITUS NON-INSULIN-DEPENDENT
     Dosage: UNKNOWN
     Dates: start: 20060401, end: 20060522
  8. SOLOMET [Suspect]
     Indication: AUTOIMMUNE HEPATITIS
     Route: 048
     Dates: start: 20060301, end: 20060519
  9. SOLOMET [Suspect]
     Dosage: UNKNOWN
     Route: 048
     Dates: start: 20060520, end: 20060522

REACTIONS (6)
  - GASTROINTESTINAL DISORDER [None]
  - MULTI-ORGAN DISORDER [None]
  - SEPTIC SHOCK [None]
  - STAPHYLOCOCCAL SEPSIS [None]
  - THROMBOCYTOPENIA [None]
  - TOXIC EPIDERMAL NECROLYSIS [None]
